FAERS Safety Report 12168294 (Version 3)
Quarter: 2016Q4

REPORT INFORMATION
  Report Type: Report from Study
  Country: GB (occurrence: GB)
  Receive Date: 20160310
  Receipt Date: 20161129
  Transmission Date: 20170207
  Serious: Yes (Other)
  Sender: FDA-Public Use
  Company Number: PHFR2016GB002165

PATIENT
  Age: 41 Year
  Sex: Female

DRUGS (1)
  1. GILENYA [Suspect]
     Active Substance: FINGOLIMOD HYDROCHLORIDE
     Indication: MULTIPLE SCLEROSIS
     Dosage: 0.5 MG, QD
     Route: 065
     Dates: start: 20150123

REACTIONS (6)
  - Central nervous system lesion [Unknown]
  - Headache [Recovered/Resolved]
  - Burning sensation [Unknown]
  - Migraine [Unknown]
  - Vaginal haemorrhage [Unknown]
  - Neuralgia [Unknown]

NARRATIVE: CASE EVENT DATE: 201501
